FAERS Safety Report 4326389-X (Version None)
Quarter: 2004Q1

REPORT INFORMATION
  Report Type: 
  Country: None (occurrence: None)
  Receive Date: 20040330
  Receipt Date: 20040209
  Transmission Date: 20041129
  Serious: Yes (Other)
  Sender: FDA-Public Use
  Company Number: PHEH2004US01742

PATIENT
  Age: 26 Year
  Sex: Female

DRUGS (3)
  1. TEGRETOL-XR [Suspect]
     Indication: EPILEPSY
     Dosage: 800 MG, BID
     Route: 048
     Dates: start: 19980101
  2. GABITRIL [Concomitant]
  3. DIAMOX [Concomitant]

REACTIONS (1)
  - PERICARDITIS [None]
